FAERS Safety Report 26121820 (Version 1)
Quarter: 2025Q4

REPORT INFORMATION
  Report Type: Spontaneous
  Country: CN (occurrence: CN)
  Receive Date: 20251204
  Receipt Date: 20251204
  Transmission Date: 20260118
  Serious: Yes (Other)
  Sender: AMGEN
  Company Number: CN-AMGEN-CHNSP2025234030

PATIENT
  Sex: Female

DRUGS (3)
  1. PROLIA [Suspect]
     Active Substance: DENOSUMAB
     Indication: Osteoporosis postmenopausal
     Dosage: 60 MILLIGRAM, Q6MO, (AT LEAST 2 TIMES)
     Route: 058
  2. CALCIUM [Concomitant]
     Active Substance: CALCIUM
     Indication: Osteoporosis postmenopausal
     Dosage: 600 MILLIGRAM, QD
     Route: 048
  3. VITAMIN D3 [Concomitant]
     Active Substance: CHOLECALCIFEROL
     Indication: Osteoporosis postmenopausal
     Dosage: 400 INTERNATIONAL UNIT, QD
     Route: 048

REACTIONS (1)
  - Spinal fracture [Unknown]
